FAERS Safety Report 4988305-7 (Version None)
Quarter: 2006Q2

REPORT INFORMATION
  Report Type: 
  Country: None (occurrence: None)
  Receive Date: 20060425
  Receipt Date: 20060412
  Transmission Date: 20061013
  Serious: Yes (Hospitalization)
  Sender: FDA-Public Use
  Company Number: 2005-01384

PATIENT
  Age: 64 Year
  Sex: Female
  Weight: 75 kg

DRUGS (3)
  1. VELCADE [Suspect]
     Indication: MULTIPLE MYELOMA
     Dosage: 2.30  MG, INTRAVENOUS
     Route: 042
     Dates: start: 20050201, end: 20050415
  2. ERYTHROPOIETIN (ERYTHROPOIETIN) [Concomitant]
  3. EUTIROX (LEVOTHYROXINE) [Concomitant]

REACTIONS (4)
  - BRONCHOSPASM [None]
  - DYSPNOEA [None]
  - PNEUMONITIS [None]
  - PULMONARY FIBROSIS [None]
